FAERS Safety Report 7892550 (Version 6)
Quarter: 2014Q1

REPORT INFORMATION
  Report Type: Spontaneous
  Country: US (occurrence: None)
  Receive Date: 20110314
  Receipt Date: 20130621
  Transmission Date: 20141002
  Serious: Yes (Death, Life-Threatening, Hospitalization, Disabling, Other)
  Sender: FDA-Public Use
  Company Number: 012278

PATIENT
  Age: 57 Year
  Sex: Female

DRUGS (32)
  1. BUSULFAN [Suspect]
     Indication: STEM CELL TRANSPLANT
     Route: 042
     Dates: start: 20101101, end: 20101101
  2. ETOPOSIDE (ETOPOSIDE) [Concomitant]
  3. CYCLOPHOSPHAMIDE (CYCLOPHOSPHAMIDE) [Concomitant]
  4. ACYCLOVIR [Concomitant]
  5. BUPROPION HYDROCHLORIDE [Concomitant]
  6. CONJUGEN (EQUILIN SULFATE SODIUM, ESTRONE SODIUM SULFATE) [Concomitant]
  7. DIVALPROEX SODIUM [Concomitant]
  8. AQUAPHOR HEALING OINTMENT (BISABOLOL, CERESIN, PARAFFIN SOFT, PARAFFIN, LIQUID, WOOL ALCOHOLS) [Concomitant]
  9. ESTRADIOL [Concomitant]
  10. ETOMIDATE [Concomitant]
  11. FENTANYL (FENTANYL) [Concomitant]
  12. FILGRASTIM (FILGRASTIM) [Concomitant]
  13. FLUCONAZOLE [Concomitant]
  14. FLUOXETINE HCL [Concomitant]
  15. FUROSEMIDE (FUROSEMIDE) [Concomitant]
  16. HEPARIN [Concomitant]
  17. LEVOFLOXACIN [Concomitant]
  18. MAGNESIUM SULFATE [Concomitant]
  19. MEROPENEM [Concomitant]
  20. OMEPRAZOLE [Concomitant]
  21. PHENAZOPYRIDINE (PHENAZOPYRIDINE) [Concomitant]
  22. SUCCINYLCHOLINE CHLORIDE [Concomitant]
  23. URSODIOL [Concomitant]
  24. VANCOMYCIN [Concomitant]
  25. VORICONAZOLE [Concomitant]
  26. ACETAMINOPHEN (PARACETAMOL) [Concomitant]
  27. CLOTRIMAZOLE [Concomitant]
  28. DIPHENHYDRAMINE HYDROCHLORIDE [Concomitant]
  29. HYDROMORPHONE HYDROCHLORIDE [Concomitant]
  30. LOPERAMIDE HYDROCHLORIDE [Concomitant]
  31. OXYCODONE (OXYCODONE) [Concomitant]
  32. PROCHLORPERAZINE [Concomitant]

REACTIONS (17)
  - Renal failure acute [None]
  - Hypernatraemia [None]
  - Respiratory distress [None]
  - Respiratory failure [None]
  - Lung infection [None]
  - Aspergillus infection [None]
  - Hypotension [None]
  - Bacterial infection [None]
  - Febrile neutropenia [None]
  - Hypoxia [None]
  - Sinus tachycardia [None]
  - Renal failure acute [None]
  - Bacterial infection [None]
  - Febrile neutropenia [None]
  - Renal failure acute [None]
  - Sepsis [None]
  - Pain [None]
